FAERS Safety Report 13194280 (Version 1)
Quarter: 2017Q1

REPORT INFORMATION
  Report Type: Report from Study
  Country: US (occurrence: US)
  Receive Date: 20170207
  Receipt Date: 20170207
  Transmission Date: 20170428
  Serious: Yes (Other)
  Sender: FDA-Public Use
  Company Number: US-JAZZ-2016-US-023241

PATIENT
  Sex: Male

DRUGS (28)
  1. DEXEDRINE [Concomitant]
     Active Substance: DEXTROAMPHETAMINE SULFATE
     Dosage: 15 MG
  2. FINASTERIDE. [Concomitant]
     Active Substance: FINASTERIDE
     Indication: PRODUCT USED FOR UNKNOWN INDICATION
     Dosage: 1 MG
     Dates: start: 20150225, end: 201604
  3. ZOLPIDEM TARTRATE. [Concomitant]
     Active Substance: ZOLPIDEM TARTRATE
     Indication: PRODUCT USED FOR UNKNOWN INDICATION
     Dosage: UNK
     Dates: start: 20130531, end: 201604
  4. XANAX [Concomitant]
     Active Substance: ALPRAZOLAM
     Indication: PRODUCT USED FOR UNKNOWN INDICATION
  5. ZINC. [Concomitant]
     Active Substance: ZINC
     Indication: PAIN
  6. VITAMIN E [Concomitant]
     Active Substance: .ALPHA.-TOCOPHEROL
     Indication: ANTIINFLAMMATORY THERAPY
  7. FINASTERIDE. [Concomitant]
     Active Substance: FINASTERIDE
     Dosage: 5 MG
  8. VITAMIN E [Concomitant]
     Active Substance: .ALPHA.-TOCOPHEROL
     Indication: PAIN
  9. NORCO [Concomitant]
     Active Substance: ACETAMINOPHEN\HYDROCODONE BITARTRATE
     Indication: PRODUCT USED FOR UNKNOWN INDICATION
  10. TRAZODONE [Suspect]
     Active Substance: TRAZODONE HYDROCHLORIDE
     Indication: PRODUCT USED FOR UNKNOWN INDICATION
  11. VITAMIN B COMPLEX WITH C [Concomitant]
     Active Substance: ASCORBIC ACID\CALCIUM PANTOTHENATE\CYANOCOBALAMIN\NIACINAMIDE\PYRIDOXINE HYDROCHLORIDE\RIBOFLAVIN\THIAMINE MONONITRATE
     Indication: ANTIINFLAMMATORY THERAPY
  12. VITAMIN B COMPLEX WITH C [Concomitant]
     Active Substance: ASCORBIC ACID\CALCIUM PANTOTHENATE\CYANOCOBALAMIN\NIACINAMIDE\PYRIDOXINE HYDROCHLORIDE\RIBOFLAVIN\THIAMINE MONONITRATE
     Indication: PAIN
  13. LYRICA [Concomitant]
     Active Substance: PREGABALIN
     Indication: PRODUCT USED FOR UNKNOWN INDICATION
  14. TURMERIC [Concomitant]
     Active Substance: TURMERIC
     Indication: ANTIINFLAMMATORY THERAPY
  15. ZYFLAMEND WHOLE BODY [Concomitant]
     Indication: PAIN
  16. XYREM [Suspect]
     Active Substance: SODIUM OXYBATE
     Dosage: 4.5 G, BID
     Route: 048
     Dates: start: 201009
  17. ZYFLAMEND WHOLE BODY [Concomitant]
     Indication: ANTIINFLAMMATORY THERAPY
  18. FISH OIL [Concomitant]
     Active Substance: FISH OIL
     Indication: ANTIINFLAMMATORY THERAPY
  19. XYREM [Suspect]
     Active Substance: SODIUM OXYBATE
     Indication: NARCOLEPSY
     Dosage: 4.5G, BID
     Route: 048
     Dates: start: 200702, end: 2007
  20. VICODIN [Concomitant]
     Active Substance: ACETAMINOPHEN\HYDROCODONE BITARTRATE
     Indication: PRODUCT USED FOR UNKNOWN INDICATION
     Dosage: UNK
     Dates: start: 20130531, end: 201604
  21. DEXEDRINE [Concomitant]
     Active Substance: DEXTROAMPHETAMINE SULFATE
     Indication: PRODUCT USED FOR UNKNOWN INDICATION
     Dosage: 10 MG
     Dates: start: 20130402, end: 201604
  22. ZINC. [Concomitant]
     Active Substance: ZINC
     Indication: ANTIINFLAMMATORY THERAPY
  23. TURMERIC [Concomitant]
     Active Substance: TURMERIC
     Indication: PAIN
  24. CURCUMIN [Concomitant]
     Active Substance: CURCUMIN
     Indication: ANTIINFLAMMATORY THERAPY
  25. CURCUMIN [Concomitant]
     Active Substance: CURCUMIN
     Indication: PAIN
  26. FISH OIL [Concomitant]
     Active Substance: FISH OIL
     Indication: PAIN
  27. SELEGILINE HCL [Concomitant]
     Active Substance: SELEGILINE HYDROCHLORIDE
     Indication: PRODUCT USED FOR UNKNOWN INDICATION
     Dosage: UNK
     Dates: start: 20150225
  28. ALPRAZOLAM. [Concomitant]
     Active Substance: ALPRAZOLAM
     Indication: PRODUCT USED FOR UNKNOWN INDICATION
     Dosage: UNK
     Dates: start: 20140116, end: 201604

REACTIONS (14)
  - Foot deformity [Unknown]
  - Tooth disorder [Unknown]
  - Intentional product use issue [Unknown]
  - Umbilical hernia [Unknown]
  - Prostatic disorder [Unknown]
  - Substance use [Unknown]
  - Pre-existing condition improved [Recovering/Resolving]
  - Drug diversion [Unknown]
  - Inguinal hernia [Unknown]
  - Haemorrhoids [Unknown]
  - Hangover [Unknown]
  - Condition aggravated [Unknown]
  - Therapeutic response unexpected [Recovering/Resolving]
  - Anal fissure [Unknown]
